FAERS Safety Report 20003597 (Version 10)
Quarter: 2022Q3

REPORT INFORMATION
  Report Type: Spontaneous
  Country: IE (occurrence: IE)
  Receive Date: 20211027
  Receipt Date: 20220206
  Transmission Date: 20221026
  Serious: Yes (Death, Other)
  Sender: FDA-Public Use
  Company Number: IE-VERTEX PHARMACEUTICALS-2021-016580

PATIENT
  Age: 33 Year
  Sex: Male

DRUGS (45)
  1. ELEXACAFTOR\IVACAFTOR\TEZACAFTOR [Suspect]
     Active Substance: ELEXACAFTOR\IVACAFTOR\TEZACAFTOR
     Indication: Cystic fibrosis
     Dosage: 2 TABS (75 MG IVA/ 50 MG TEZA/100 MG ELEXA), AM
     Route: 048
     Dates: start: 20201209, end: 20210803
  2. KALYDECO [Suspect]
     Active Substance: IVACAFTOR
     Indication: Cystic fibrosis
     Dosage: (150MG IVA) PM
     Route: 048
     Dates: start: 20201209, end: 20210803
  3. AZITHROMYCIN [Concomitant]
     Active Substance: AZITHROMYCIN
     Indication: Cystic fibrosis
     Dosage: DAILY
     Route: 048
  4. COLISTIMETHATE SODIUM [Concomitant]
     Active Substance: COLISTIMETHATE SODIUM
     Indication: Cystic fibrosis
     Dosage: 125 MG, BID
  5. COLISTIMETHATE SODIUM [Concomitant]
     Active Substance: COLISTIMETHATE SODIUM
  6. COLISTIMETHATE SODIUM [Concomitant]
     Active Substance: COLISTIMETHATE SODIUM
     Dosage: ALTERNATING WITH TOBI POD INHALER MONTHLY
  7. COLISTIMETHATE SODIUM [Concomitant]
     Active Substance: COLISTIMETHATE SODIUM
     Dosage: 125 MG, BID
  8. COLISTIMETHATE SODIUM [Concomitant]
     Active Substance: COLISTIMETHATE SODIUM
     Dosage: 125 MG, BID, ALTERNATING WITH TOBI POD INHALER MONTHLY
  9. TOBI PODHALER [Concomitant]
     Active Substance: TOBRAMYCIN
     Indication: Cystic fibrosis
     Dosage: 112 MILLIGRAM
  10. TOBI PODHALER [Concomitant]
     Active Substance: TOBRAMYCIN
     Dosage: 112 MILLIGRAM ALTERNATING WITH COLOBREATHE MONTHLY
  11. PULMOZYME [Concomitant]
     Active Substance: DORNASE ALFA
     Indication: Cystic fibrosis
     Dosage: 2.5 MG, BID
  12. PULMOZYME [Concomitant]
     Active Substance: DORNASE ALFA
     Dosage: 2.5 MILLIGRAM, QD
  13. PULMOZYME [Concomitant]
     Active Substance: DORNASE ALFA
     Dosage: 2.5 MG, BID
  14. PULMOZYME [Concomitant]
     Active Substance: DORNASE ALFA
     Dosage: 2.5 MILLIGRAM, QD
  15. SODIUM CHLORIDE [Concomitant]
     Active Substance: SODIUM CHLORIDE
     Indication: Cystic fibrosis
     Dosage: 4MLS NEBS BID
  16. SODIUM CHLORIDE [Concomitant]
     Active Substance: SODIUM CHLORIDE
     Dosage: 4MLS NEBS BID
  17. SODIUM CHLORIDE [Concomitant]
     Active Substance: SODIUM CHLORIDE
     Dosage: 4MLS NEBS BID
  18. SODIUM CHLORIDE [Concomitant]
     Active Substance: SODIUM CHLORIDE
     Dosage: 4MLS NEBS BID
  19. SODIUM CHLORIDE [Concomitant]
     Active Substance: SODIUM CHLORIDE
     Dosage: 4MLS NEBS BID
  20. CREON [Concomitant]
     Active Substance: PANCRELIPASE AMYLASE\PANCRELIPASE LIPASE\PANCRELIPASE PROTEASE
     Indication: Cystic fibrosis
     Dosage: AS PER MEAL INTAKE
  21. CREON [Concomitant]
     Active Substance: PANCRELIPASE AMYLASE\PANCRELIPASE LIPASE\PANCRELIPASE PROTEASE
     Dosage: AS PER MEAL INTAKE
  22. CREON [Concomitant]
     Active Substance: PANCRELIPASE AMYLASE\PANCRELIPASE LIPASE\PANCRELIPASE PROTEASE
     Dosage: AS PER MEAL INTAKE
  23. CREON [Concomitant]
     Active Substance: PANCRELIPASE AMYLASE\PANCRELIPASE LIPASE\PANCRELIPASE PROTEASE
     Dosage: AS PER MEAL INTAKE
  24. SERETIDE [Concomitant]
     Active Substance: FLUTICASONE PROPIONATE\SALMETEROL XINAFOATE
     Indication: Product used for unknown indication
     Dosage: 2 PUFFS (25/250MICROGRAM)BID
  25. ALBUTEROL [Concomitant]
     Active Substance: ALBUTEROL
     Indication: Cystic fibrosis
     Dosage: UNK, PRN
  26. ALBUTEROL [Concomitant]
     Active Substance: ALBUTEROL
     Dosage: UNK, PRN
  27. ALBUTEROL [Concomitant]
     Active Substance: ALBUTEROL
     Dosage: UNK, PRN
  28. SODIUM CHLORIDE [Concomitant]
     Active Substance: SODIUM CHLORIDE
     Indication: Cystic fibrosis
     Dosage: 4 MILLILITER, BID
     Route: 055
  29. NEILMED SINUS RINSE [Concomitant]
     Active Substance: SODIUM BICARBONATE\SODIUM CHLORIDE
     Indication: Cystic fibrosis
     Dosage: UNK, BID
  30. NEILMED SINUS RINSE [Concomitant]
     Active Substance: SODIUM BICARBONATE\SODIUM CHLORIDE
     Dosage: UNK, BID
  31. VENTOLIN [Concomitant]
     Active Substance: ALBUTEROL SULFATE
     Indication: Cystic fibrosis
     Dosage: PRN 1 PUFF AS NEEDED
  32. FLUTICASONE PROPIONATE [Concomitant]
     Active Substance: FLUTICASONE PROPIONATE
     Dosage: 250 UG
  33. FLUTICASONE PROPIONATE [Concomitant]
     Active Substance: FLUTICASONE PROPIONATE
     Dosage: 250 UG
  34. FLUTICASONE PROPIONATE [Concomitant]
     Active Substance: FLUTICASONE PROPIONATE
     Dosage: 250 UG
  35. SALMETEROL [Concomitant]
     Active Substance: SALMETEROL
     Indication: Product used for unknown indication
     Dosage: 25 UG
  36. SALMETEROL [Concomitant]
     Active Substance: SALMETEROL
     Dosage: 25 UG
  37. SALMETEROL [Concomitant]
     Active Substance: SALMETEROL
     Dosage: 25 UG
  38. SALMETEROL [Concomitant]
     Active Substance: SALMETEROL
     Dosage: 2 PUFFS (25/250MICROGRAM)BID
  39. VITAMIN E [Concomitant]
     Active Substance: .ALPHA.-TOCOPHEROL
  40. VITAMIN K [Concomitant]
     Active Substance: PHYTONADIONE
  41. VITAMIN D [Concomitant]
     Active Substance: VITAMIN D NOS
  42. VITAMIN A [Concomitant]
     Active Substance: VITAMIN A
     Indication: Cystic fibrosis
  43. Hypertonic saline nebs 7% [Concomitant]
     Indication: Cystic fibrosis
     Dosage: 4 MILLILITER, BID
  44. PULMOZYME 2500U/2.5ML NEBULISER SOLUTION [Concomitant]
     Indication: Cystic fibrosis
     Dosage: 2.5 MILLIGRAM, QD
  45. SERETIDE 250 EVOHALER 25/250MICROGRAM/DOSE PRESSUR [Concomitant]
     Indication: Product used for unknown indication
     Dosage: 2 PUFFS (25/250MICROGRAM)BID

REACTIONS (13)
  - Increased appetite [Unknown]
  - Weight increased [Unknown]
  - Hanging [Fatal]
  - Completed suicide [Fatal]
  - Substance abuse [Fatal]
  - Fatigue [Unknown]
  - Agitation [Fatal]
  - Abnormal behaviour [Fatal]
  - Sleep disorder [Fatal]
  - Anhedonia [Fatal]
  - Anxiety [Fatal]
  - Mental disorder [Fatal]
  - Obsessive-compulsive disorder [Fatal]

NARRATIVE: CASE EVENT DATE: 20210201
